FAERS Safety Report 15197647 (Version 1)
Quarter: 2018Q3

REPORT INFORMATION
  Report Type: Spontaneous
  Country: US (occurrence: US)
  Receive Date: 20180626
  Receipt Date: 20180626
  Transmission Date: 20181010
  Serious: No
  Sender: FDA-Public Use
  Company Number: None

PATIENT
  Age: 87 Year
  Sex: Female

DRUGS (1)
  1. CAPECITABINE TAB 500 MG [Suspect]
     Active Substance: CAPECITABINE
     Dates: start: 20180330, end: 20180626

REACTIONS (7)
  - Decreased appetite [None]
  - Ageusia [None]
  - Fatigue [None]
  - Palmar-plantar erythrodysaesthesia syndrome [None]
  - Seborrhoea [None]
  - Skin discolouration [None]
  - Nipple disorder [None]

NARRATIVE: CASE EVENT DATE: 20180626
